FAERS Safety Report 6714995-4 (Version None)
Quarter: 2010Q2

REPORT INFORMATION
  Report Type: 
  Country: None (occurrence: None)
  Receive Date: 20100507
  Receipt Date: 20100503
  Transmission Date: 20101027
  Serious: Yes (Life-Threatening)
  Sender: FDA-Public Use
  Company Number: CA-ASTRAZENECA-2010SE19930

PATIENT
  Sex: Male
  Weight: 90.7 kg

DRUGS (5)
  1. XYLOCAINE [Suspect]
     Route: 014
  2. DEPO-MEDROL [Suspect]
     Route: 014
  3. HYDROCHLOROTHIAZIDE [Concomitant]
  4. METOPROLOL [Concomitant]
  5. RATIO-OXYCOCET [Concomitant]

REACTIONS (3)
  - COUGH [None]
  - DYSPNOEA [None]
  - PRURITUS [None]
